FAERS Safety Report 20713545 (Version 1)
Quarter: 2022Q2

REPORT INFORMATION
  Report Type: Spontaneous
  Country: US (occurrence: None)
  Receive Date: 20220414
  Receipt Date: 20220414
  Transmission Date: 20220720
  Serious: No
  Sender: FDA-Public Use
  Company Number: None

PATIENT
  Age: 74 Year
  Sex: Male
  Weight: 107.32 kg

DRUGS (6)
  1. REBLOZYL [Suspect]
     Active Substance: LUSPATERCEPT-AAMT
     Indication: Myelodysplastic syndrome
     Dosage: OTHER FREQUENCY : Q21DAYS;?
     Route: 058
     Dates: end: 20220414
  2. ARIPIPRAZOLE [Concomitant]
  3. CLONAZEPAM [Concomitant]
  4. DULCOLAX [Concomitant]
  5. DULOXETINE [Concomitant]
  6. MIRTAZAPINE [Concomitant]

REACTIONS (2)
  - Full blood count abnormal [None]
  - Therapy non-responder [None]
